FAERS Safety Report 9832685 (Version 7)
Quarter: 2014Q4

REPORT INFORMATION
  Report Type: Report from Study
  Country: US (occurrence: US)
  Receive Date: 20140121
  Receipt Date: 20141110
  Transmission Date: 20150529
  Serious: Yes (Hospitalization, Other)
  Sender: FDA-Public Use
  Company Number: US-ALEXION PHARMACEUTICALS INC.-A201303913

PATIENT

DRUGS (14)
  1. VALIUM [Concomitant]
     Active Substance: DIAZEPAM
     Indication: PRODUCT USED FOR UNKNOWN INDICATION
     Dosage: 10 MG, EVERY 6 HOURS
     Route: 048
     Dates: start: 20130801
  2. SYNTHROID [Concomitant]
     Active Substance: LEVOTHYROXINE SODIUM
     Indication: PRODUCT USED FOR UNKNOWN INDICATION
     Dosage: 112 ?G, BEDTIME
     Route: 048
     Dates: start: 20130801
  3. DELTASONE                          /00044701/ [Concomitant]
     Indication: PRODUCT USED FOR UNKNOWN INDICATION
     Dosage: 5 MG, QD
     Route: 048
  4. IMURAN [Concomitant]
     Active Substance: AZATHIOPRINE
     Indication: IMMUNOSUPPRESSANT DRUG THERAPY
     Dosage: 25 MG, QD
     Route: 048
     Dates: start: 20130801, end: 201405
  5. WELLBUTRIN [Concomitant]
     Active Substance: BUPROPION HYDROCHLORIDE
     Indication: PRODUCT USED FOR UNKNOWN INDICATION
     Dosage: 300 MG, QD
     Route: 048
     Dates: start: 20130801
  6. METROGEL [Concomitant]
     Active Substance: METRONIDAZOLE
     Indication: PRODUCT USED FOR UNKNOWN INDICATION
     Dosage: UNK UNK, QD
     Route: 061
     Dates: start: 20130801
  7. AMICAR [Concomitant]
     Active Substance: AMINOCAPROIC ACID
     Indication: HAEMORRHAGE
     Dosage: UPTO 28 PILLS, QD
     Route: 048
  8. XANAX [Concomitant]
     Active Substance: ALPRAZOLAM
     Indication: PRODUCT USED FOR UNKNOWN INDICATION
     Dosage: 2 MG, BID
     Route: 048
     Dates: start: 20130801
  9. PLAQUENIL [Concomitant]
     Active Substance: HYDROXYCHLOROQUINE SULFATE
     Indication: IMMUNOSUPPRESSANT DRUG THERAPY
     Dosage: 200 MG, BID
     Route: 048
     Dates: start: 20130801
  10. INDERAL [Concomitant]
     Active Substance: PROPRANOLOL HYDROCHLORIDE
     Indication: ANXIETY
     Dosage: 40 MG, PRN
     Route: 048
  11. ELTROMBOPAG [Concomitant]
     Active Substance: ELTROMBOPAG
     Indication: PRODUCT USED FOR UNKNOWN INDICATION
     Dosage: 75 MG, QD
     Route: 048
  12. SOLIRIS [Suspect]
     Active Substance: ECULIZUMAB
     Indication: PAROXYSMAL NOCTURNAL HAEMOGLOBINURIA
     Dosage: 900 MG, Q2W
     Route: 042
     Dates: start: 20130830
  13. RESTASIS [Concomitant]
     Active Substance: CYCLOSPORINE
     Indication: DRY EYE
     Dosage: 1 DROP IN BOTH EYES, BID
     Route: 047
     Dates: start: 20130801
  14. AMBIEN [Concomitant]
     Active Substance: ZOLPIDEM TARTRATE
     Indication: PRODUCT USED FOR UNKNOWN INDICATION
     Dosage: 10 MG, QD
     Route: 048
     Dates: start: 20130108

REACTIONS (12)
  - Aplastic anaemia [Not Recovered/Not Resolved]
  - Insomnia [Unknown]
  - Platelet count decreased [Not Recovered/Not Resolved]
  - Thrombocytopenia [Not Recovered/Not Resolved]
  - Unevaluable event [Unknown]
  - Abdominal distension [Unknown]
  - Blood count abnormal [Unknown]
  - Drug ineffective [Unknown]
  - Abdominal pain [Unknown]
  - Cyst rupture [Unknown]
  - Localised intraabdominal fluid collection [Unknown]
  - Haemoglobin decreased [Unknown]
